FAERS Safety Report 18907639 (Version 2)
Quarter: 2024Q4

REPORT INFORMATION
  Report Type: Spontaneous
  Country: ES (occurrence: ES)
  Receive Date: 20210217
  Receipt Date: 20241105
  Transmission Date: 20250114
  Serious: Yes (Other)
  Sender: AUROBINDO
  Company Number: ES-MLMSERVICE-20210204-2704147-1

PATIENT
  Age: 68 Year
  Sex: Female

DRUGS (1)
  1. LEVOFLOXACIN [Suspect]
     Active Substance: LEVOFLOXACIN
     Indication: Product used for unknown indication
     Dosage: UNK
     Route: 065

REACTIONS (7)
  - Autoimmune hepatitis [Recovering/Resolving]
  - Drug-induced liver injury [Recovering/Resolving]
  - Hyperbilirubinaemia [Recovering/Resolving]
  - Pruritus [Recovering/Resolving]
  - Abdominal pain upper [Recovering/Resolving]
  - Choluria [Recovering/Resolving]
  - Hypertransaminasaemia [Recovering/Resolving]
